FAERS Safety Report 9931428 (Version 2)
Quarter: 2014Q1

REPORT INFORMATION
  Report Type: Spontaneous
  Country: US (occurrence: US)
  Receive Date: 20140228
  Receipt Date: 20140328
  Transmission Date: 20141002
  Serious: Yes (Hospitalization)
  Sender: FDA-Public Use
  Company Number: US-ASTRAZENECA-2014SE12276

PATIENT
  Age: 56 Year
  Sex: Female
  Weight: 49.9 kg

DRUGS (3)
  1. SYMBICORT [Suspect]
     Indication: BRONCHITIS CHRONIC
     Dosage: 160/4.5 MCG, ONCE OR TWICE DAILY PRN
     Route: 055
     Dates: start: 2013
  2. ALBUTEROL [Concomitant]
  3. UNSPECIFIED SOLUTION DROPS FOR NEBULIZER [Concomitant]
     Indication: BRONCHITIS
     Dosage: EVERY DAY PRN

REACTIONS (6)
  - Bronchitis chronic [Unknown]
  - Dyspnoea [Not Recovered/Not Resolved]
  - Malaise [Not Recovered/Not Resolved]
  - Device misuse [Unknown]
  - Intentional drug misuse [Unknown]
  - Circumstance or information capable of leading to medication error [Unknown]
